FAERS Safety Report 13604656 (Version 1)
Quarter: 2017Q2

REPORT INFORMATION
  Report Type: Spontaneous
  Country: US (occurrence: US)
  Receive Date: 20170601
  Receipt Date: 20170601
  Transmission Date: 20170830
  Serious: Yes (Hospitalization)
  Sender: FDA-Public Use
  Company Number: None

PATIENT
  Age: 28 Year
  Sex: Female

DRUGS (9)
  1. TRINESSA [Concomitant]
     Active Substance: ETHINYL ESTRADIOL\NORGESTIMATE
  2. HYDROMORPHON [Concomitant]
     Active Substance: HYDROMORPHONE
  3. PREMARIN [Concomitant]
     Active Substance: ESTROGENS, CONJUGATED
  4. IBUPROFEN. [Concomitant]
     Active Substance: IBUPROFEN
  5. TOPIRAMATE. [Concomitant]
     Active Substance: TOPIRAMATE
  6. HYDROXYUREA. [Concomitant]
     Active Substance: HYDROXYUREA
  7. JADENU [Suspect]
     Active Substance: DEFERASIROX
     Indication: HAEMOCHROMATOSIS
     Route: 048
     Dates: start: 20150926
  8. GABAPENTIN. [Concomitant]
     Active Substance: GABAPENTIN
  9. CYCLOBENZAPR [Concomitant]
     Active Substance: CYCLOBENZAPRINE

REACTIONS (1)
  - Sickle cell anaemia [None]

NARRATIVE: CASE EVENT DATE: 20170401
